FAERS Safety Report 9646172 (Version 2)
Quarter: 2013Q4

REPORT INFORMATION
  Report Type: Spontaneous
  Country: JP (occurrence: JP)
  Receive Date: 20131025
  Receipt Date: 20131101
  Transmission Date: 20140711
  Serious: Yes (Other)
  Sender: FDA-Public Use
  Company Number: JP-OTSUKA-JP-2013-14790

PATIENT
  Sex: 0

DRUGS (2)
  1. SAMSCA [Suspect]
     Route: 048
  2. VANCOMYCIN [Concomitant]
     Route: 065

REACTIONS (2)
  - Drug level increased [Unknown]
  - Drug interaction [Unknown]
